FAERS Safety Report 6249014-X (Version None)
Quarter: 2009Q2

REPORT INFORMATION
  Report Type: 
  Country: None (occurrence: None)
  Receive Date: 20090624
  Receipt Date: 20090624
  Transmission Date: 20091009
  Serious: No
  Sender: FDA-Public Use
  Company Number: None

PATIENT
  Age: 29 Year
  Sex: Male
  Weight: 86.1834 kg

DRUGS (1)
  1. CLONAZEPAM [Suspect]
     Indication: PANIC ATTACK
     Dosage: 0.5 MGS 4 X DAILY PO
     Route: 048
     Dates: start: 20010525, end: 20090503

REACTIONS (6)
  - ANXIETY [None]
  - ARRHYTHMIA [None]
  - DEPENDENCE [None]
  - DRUG TOLERANCE [None]
  - VERTIGO [None]
  - WITHDRAWAL SYNDROME [None]
